FAERS Safety Report 9319581 (Version 8)
Quarter: 2016Q3

REPORT INFORMATION
  Report Type: Spontaneous
  Country: US (occurrence: US)
  Receive Date: 20130530
  Receipt Date: 20160830
  Transmission Date: 20161109
  Serious: Yes (Hospitalization, Other)
  Sender: FDA-Public Use
  Company Number: US-GLAXOSMITHKLINE-A1009056A

PATIENT
  Age: 66 Year
  Sex: Female

DRUGS (8)
  1. FLOLAN [Suspect]
     Active Substance: EPOPROSTENOL SODIUM
     Indication: PULMONARY ARTERIAL HYPERTENSION
  2. FLOLAN [Suspect]
     Active Substance: EPOPROSTENOL SODIUM
     Dosage: 29.5 NG/KG/MIN
  3. FLOLAN [Suspect]
     Active Substance: EPOPROSTENOL SODIUM
     Dosage: 29.5 NG/KG/MIN
  4. FLOLAN [Suspect]
     Active Substance: EPOPROSTENOL SODIUM
     Dosage: 29.5 NG/KG/MIN, CO
     Dates: start: 20050202
  5. FLOLAN [Suspect]
     Active Substance: EPOPROSTENOL SODIUM
     Indication: PULMONARY ARTERIAL HYPERTENSION
     Dosage: DOSE: 29.5 NG/KG/MIN, CONCENTRATION: 45,000 NG/ML, PUMP RATE: 66 ML/DAY, VIAL STRENGTH: 1.5 MG
     Route: 065
     Dates: start: 20050202
  6. REVATIO [Concomitant]
     Active Substance: SILDENAFIL CITRATE
  7. FLOLAN [Suspect]
     Active Substance: EPOPROSTENOL SODIUM
     Dosage: UNK
     Dates: start: 20050202
  8. FLOLAN [Suspect]
     Active Substance: EPOPROSTENOL SODIUM
     Dosage: 29.5 NG/KG/MIN 45,000 NG/ML 66 ML/DAY 1.5MG
     Dates: start: 20050203

REACTIONS (9)
  - Device alarm issue [Recovered/Resolved]
  - Device infusion issue [Recovered/Resolved]
  - Pneumonia [Unknown]
  - Fall [Unknown]
  - Hypoacusis [Unknown]
  - Nasopharyngitis [Unknown]
  - Contusion [Unknown]
  - Herpes zoster [Unknown]
  - Drug dose omission [Recovered/Resolved]

NARRATIVE: CASE EVENT DATE: 20150330
